FAERS Safety Report 8327497-9 (Version None)
Quarter: 2012Q2

REPORT INFORMATION
  Report Type: 
  Country: None (occurrence: None)
  Receive Date: 20120502
  Receipt Date: 20120423
  Transmission Date: 20120825
  Serious: Yes (Hospitalization)
  Sender: FDA-Public Use
  Company Number: US-BAYER-2012-007513

PATIENT
  Age: 36 Year
  Sex: Female
  Weight: 117.91 kg

DRUGS (5)
  1. TOPIRAMATE [Concomitant]
     Dosage: 50 MG, UNK
  2. TOPRAMATE [Concomitant]
  3. YAZ [Suspect]
     Indication: CONTRACEPTION
     Dosage: UNK
     Dates: start: 20090801, end: 20100101
  4. NORTRIPTYLINE HYDROCHLORIDE [Concomitant]
     Dosage: 10 MG, UNK
     Dates: start: 20091103
  5. NAPROXEN (ALEVE) [Concomitant]
     Dosage: UNK
     Dates: start: 20100118

REACTIONS (6)
  - CHOLELITHIASIS [None]
  - FEAR [None]
  - ANXIETY [None]
  - PAIN [None]
  - EMOTIONAL DISTRESS [None]
  - PSYCHOLOGICAL TRAUMA [None]
